FAERS Safety Report 22102317 (Version 1)
Quarter: 2023Q1

REPORT INFORMATION
  Report Type: Spontaneous
  Country: US (occurrence: None)
  Receive Date: 20230315
  Receipt Date: 20230315
  Transmission Date: 20230417
  Serious: No
  Sender: FDA-Public Use
  Company Number: None

PATIENT
  Sex: 0

DRUGS (1)
  1. LUVOX [Suspect]
     Active Substance: FLUVOXAMINE MALEATE

REACTIONS (3)
  - Headache [None]
  - Nausea [None]
  - Anxiety [None]
